FAERS Safety Report 14030507 (Version 1)
Quarter: 2017Q4

REPORT INFORMATION
  Report Type: Spontaneous
  Country: US (occurrence: US)
  Receive Date: 20171002
  Receipt Date: 20171002
  Transmission Date: 20180321
  Serious: No
  Sender: FDA-Public Use
  Company Number: US-MAYNE PHARMA-2017MYN000877

PATIENT
  Age: 76 Year
  Sex: Female
  Weight: 52.15 kg

DRUGS (4)
  1. OPDIVO [Concomitant]
     Active Substance: NIVOLUMAB
     Indication: NEOPLASM MALIGNANT
     Dosage: UNK
     Route: 042
  2. FENTANYL. [Suspect]
     Active Substance: FENTANYL
     Indication: CANCER PAIN
     Dosage: UNK, TID
     Route: 062
     Dates: start: 20170421
  3. FENTANYL. [Suspect]
     Active Substance: FENTANYL
     Dosage: 12.5 ?G/H, UNK
     Route: 062
     Dates: start: 201703, end: 201704
  4. LIPITOR [Concomitant]
     Active Substance: ATORVASTATIN CALCIUM
     Dosage: 1 DF, QD

REACTIONS (1)
  - Drug ineffective [Unknown]

NARRATIVE: CASE EVENT DATE: 201702
